FAERS Safety Report 12478703 (Version 2)
Quarter: 2016Q3

REPORT INFORMATION
  Report Type: Spontaneous
  Country: US (occurrence: US)
  Receive Date: 20160619
  Receipt Date: 20160720
  Transmission Date: 20161109
  Serious: Yes (Other)
  Sender: FDA-Public Use
  Company Number: US-BAXTER-2016BAX031303

PATIENT
  Weight: 2.77 kg

DRUGS (1)
  1. 10% DEXTROSE INJECTION, USP [Suspect]
     Active Substance: DEXTROSE
     Indication: PRODUCT USED FOR UNKNOWN INDICATION
     Dosage: RATE: 80ML/KG/DAY CONTINUOUS INFUSION RUNNING AT 9.1ML/HR, STANDARD DOSE
     Route: 065
     Dates: start: 20160608, end: 20160609

REACTIONS (1)
  - Blood glucose increased [Recovering/Resolving]

NARRATIVE: CASE EVENT DATE: 20160609
